FAERS Safety Report 8597529-1 (Version None)
Quarter: 2012Q3

REPORT INFORMATION
  Report Type: 
  Country: None (occurrence: None)
  Receive Date: 20120816
  Receipt Date: 20120807
  Transmission Date: 20120928
  Serious: Yes (Other)
  Sender: FDA-Public Use
  Company Number: US-BAYER-2012-021801

PATIENT
  Age: 18 Year
  Sex: Female
  Weight: 54.422 kg

DRUGS (10)
  1. BENTYL [Concomitant]
     Dosage: 10 MG, UNK
     Route: 048
     Dates: start: 20110310
  2. HYDROCODONE BITARTRATE + ACETAMINOPHEN [Concomitant]
     Dosage: UNK
     Route: 048
     Dates: start: 20110325, end: 20110530
  3. ALINA [Concomitant]
     Dosage: UNK
     Route: 048
     Dates: start: 20110310
  4. AMOXICILLIN [Concomitant]
     Dosage: UNK
     Route: 048
     Dates: start: 20110420
  5. PROMETHAZINE [Concomitant]
     Dosage: 25 MG, UNK
     Route: 048
     Dates: start: 20110325, end: 20110527
  6. AMOXICILLIN [Concomitant]
     Dosage: 500 MG, UNK
     Route: 048
     Dates: start: 20110325, end: 20110419
  7. DROSPIRENONE AND ETHINYL ESTRADIOL [Suspect]
     Indication: OVARIAN CYST
     Dosage: UNK
     Dates: start: 20100329, end: 20110801
  8. DICYCLOMINE [Concomitant]
     Dosage: 10 MG, UNK
     Route: 048
     Dates: start: 20110403
  9. DEXILANT [Concomitant]
     Dosage: 60 MG, UNK
     Dates: start: 20110216
  10. XIFAXAN [Concomitant]
     Dosage: 550 MG, UNK
     Route: 048
     Dates: start: 20110310

REACTIONS (5)
  - CHOLECYSTITIS CHRONIC [None]
  - DEPRESSION [None]
  - ANXIETY [None]
  - BILIARY DYSKINESIA [None]
  - PAIN [None]
